FAERS Safety Report 7299863-4 (Version None)
Quarter: 2011Q1

REPORT INFORMATION
  Report Type: 
  Country: None (occurrence: None)
  Receive Date: 20110217
  Receipt Date: 20110215
  Transmission Date: 20110831
  Serious: Yes (Hospitalization)
  Sender: FDA-Public Use
  Company Number: DE-PFIZER INC-2006025471

PATIENT
  Age: 67 Year
  Sex: Female
  Weight: 74 kg

DRUGS (7)
  1. HYDROCORTISON [Concomitant]
     Route: 048
     Dates: start: 20041201
  2. REPAGLINIDE [Concomitant]
     Route: 048
     Dates: start: 20051223
  3. BENZOCAINE [Concomitant]
     Route: 048
     Dates: start: 20060206
  4. AMLODIPINE [Concomitant]
     Route: 048
     Dates: start: 20060206
  5. SUNITINIB MALATE [Suspect]
     Indication: METASTATIC RENAL CELL CARCINOMA
     Dosage: 50 MG, 1X/DAY
     Route: 048
     Dates: start: 20060123
  6. MOVICOL [Concomitant]
     Route: 048
     Dates: start: 20060206
  7. ALLOPURINOL [Concomitant]
     Route: 048
     Dates: start: 20041201

REACTIONS (1)
  - PROCTALGIA [None]
